FAERS Safety Report 8888232 (Version 5)
Quarter: 2013Q2

REPORT INFORMATION
  Report Type: Spontaneous
  Country: JP (occurrence: JP)
  Receive Date: 20121106
  Receipt Date: 20130603
  Transmission Date: 20140414
  Serious: Yes (Death, Hospitalization)
  Sender: FDA-Public Use
  Company Number: JP-JNJFOC-20121014509

PATIENT
  Age: 78 Year
  Sex: Female
  Weight: 48 kg

DRUGS (11)
  1. REMICADE [Suspect]
     Indication: RHEUMATOID ARTHRITIS
     Route: 042
  2. REMICADE [Suspect]
     Indication: RHEUMATOID ARTHRITIS
     Route: 042
     Dates: start: 20120824
  3. REMICADE [Suspect]
     Indication: RHEUMATOID ARTHRITIS
     Route: 042
     Dates: start: 20120907
  4. REMICADE [Suspect]
     Indication: RHEUMATOID ARTHRITIS
     Route: 042
     Dates: start: 200005
  5. PREDONINE [Suspect]
     Indication: RHEUMATOID LUNG
     Route: 048
     Dates: start: 20120907, end: 20120913
  6. PREDONINE [Suspect]
     Indication: RHEUMATOID LUNG
     Route: 048
     Dates: start: 20120724, end: 20120802
  7. PREDONINE [Suspect]
     Indication: RHEUMATOID LUNG
     Route: 048
     Dates: start: 20120803, end: 20120807
  8. PREDONINE [Suspect]
     Indication: RHEUMATOID LUNG
     Route: 048
     Dates: start: 20120808, end: 20120823
  9. PREDONINE [Suspect]
     Indication: RHEUMATOID LUNG
     Route: 048
     Dates: start: 20120824, end: 20120906
  10. PREDONINE [Suspect]
     Indication: RHEUMATOID LUNG
     Route: 048
     Dates: start: 20120914
  11. METHOTREXATE [Concomitant]
     Indication: RHEUMATOID ARTHRITIS
     Route: 048
     Dates: end: 20121008

REACTIONS (2)
  - Pneumothorax [Fatal]
  - Pneumonia cytomegaloviral [Fatal]
